FAERS Safety Report 9685908 (Version 1)
Quarter: 2013Q4

REPORT INFORMATION
  Report Type: Spontaneous
  Country: GB (occurrence: GB)
  Receive Date: 20131113
  Receipt Date: 20131113
  Transmission Date: 20140711
  Serious: Yes (Other)
  Sender: FDA-Public Use
  Company Number: GB-JNJFOC-20131101869

PATIENT
  Age: 14 Month
  Sex: Female

DRUGS (1)
  1. INFLIXIMAB, RECOMBINANT [Suspect]
     Indication: TAKAYASU^S ARTERITIS
     Dosage: AT 0, 2, 6 AND 4 WEEKS THEREAFTER
     Route: 042

REACTIONS (2)
  - Transient ischaemic attack [Recovering/Resolving]
  - Off label use [Unknown]
